FAERS Safety Report 25342900 (Version 1)
Quarter: 2025Q2

REPORT INFORMATION
  Report Type: Spontaneous
  Country: ES (occurrence: ES)
  Receive Date: 20250521
  Receipt Date: 20250521
  Transmission Date: 20250716
  Serious: Yes (Other)
  Sender: MYLAN
  Company Number: None

PATIENT
  Age: 77 Year
  Sex: Female
  Weight: 64 kg

DRUGS (1)
  1. DOXAZOSIN MESYLATE [Suspect]
     Active Substance: DOXAZOSIN MESYLATE
     Indication: Hypertension
     Dosage: 4 MILLIGRAM, QD (28 TABLETS)
     Dates: start: 20250409, end: 20250423

REACTIONS (1)
  - Urinary incontinence [Recovered/Resolved]

NARRATIVE: CASE EVENT DATE: 20250409
